FAERS Safety Report 17377477 (Version 1)
Quarter: 2020Q1

REPORT INFORMATION
  Report Type: Spontaneous
  Country: US (occurrence: US)
  Receive Date: 20200122
  Receipt Date: 20200122
  Transmission Date: 20200409
  Serious: Yes (Life-Threatening, Hospitalization)
  Sender: FDA-Public Use
  Company Number: None

PATIENT
  Age: 61 Year
  Sex: Female
  Weight: 68.04 kg

DRUGS (14)
  1. INTRATHECAL BACLOFEN [Concomitant]
     Active Substance: BACLOFEN
  2. LIOTHYRONINE [Concomitant]
     Active Substance: LIOTHYRONINE
  3. MUCINEX [Concomitant]
     Active Substance: GUAIFENESIN
  4. MIRALAX [Concomitant]
     Active Substance: POLYETHYLENE GLYCOL 3350
  5. DULOXETINE. [Concomitant]
     Active Substance: DULOXETINE
  6. LORAZEPAM. [Concomitant]
     Active Substance: LORAZEPAM
  7. VITAMIN D3 [Concomitant]
     Active Substance: CHOLECALCIFEROL
  8. COQ10 [Concomitant]
     Active Substance: UBIDECARENONE
  9. BACLOFEN. [Suspect]
     Active Substance: BACLOFEN
  10. LEVOTHYROXINE. [Concomitant]
     Active Substance: LEVOTHYROXINE
  11. NUELEXTA [Concomitant]
  12. PRILOSEC [Concomitant]
     Active Substance: OMEPRAZOLE MAGNESIUM
  13. ORAL BACLOFEN [Concomitant]
     Active Substance: BACLOFEN
  14. MAGNESIUM [Concomitant]
     Active Substance: MAGNESIUM

REACTIONS (7)
  - Muscle spasticity [None]
  - Device malfunction [None]
  - Hallucination [None]
  - Feeling abnormal [None]
  - Insomnia [None]
  - Malaise [None]
  - Drug withdrawal syndrome [None]

NARRATIVE: CASE EVENT DATE: 20191103
